FAERS Safety Report 17692443 (Version 1)
Quarter: 2020Q2

REPORT INFORMATION
  Report Type: Report from Study
  Country: US (occurrence: US)
  Receive Date: 20200422
  Receipt Date: 20200422
  Transmission Date: 20200714
  Serious: Yes (Other)
  Sender: FDA-Public Use
  Company Number: US-ROCHE-2585408

PATIENT
  Sex: Female

DRUGS (2)
  1. AVASTIN [Suspect]
     Active Substance: BEVACIZUMAB
     Indication: CERVIX CARCINOMA
     Dosage: INFUNDA 630 MILI GRAMOS INTRAVENOSAMENTE CADA 21 D
     Route: 065
  2. AVASTIN [Suspect]
     Active Substance: BEVACIZUMAB
     Indication: CHEMOTHERAPY
     Dosage: INFUNDA 630 MILI GRAMOS INTRAVENOSAMENTE CADA 21 D
     Route: 065

REACTIONS (1)
  - Cervix carcinoma [Unknown]
